FAERS Safety Report 17054329 (Version 4)
Quarter: 2022Q2

REPORT INFORMATION
  Report Type: Report from Study
  Country: US (occurrence: US)
  Receive Date: 20191120
  Receipt Date: 20220531
  Transmission Date: 20220721
  Serious: Yes (Hospitalization, Other)
  Sender: FDA-Public Use
  Company Number: US-SHIRE-US201937989

PATIENT
  Sex: Female
  Weight: 67 kg

DRUGS (18)
  1. HUMAN IMMUNOGLOBULIN G [Suspect]
     Active Substance: HUMAN IMMUNOGLOBULIN G
     Indication: Immunodeficiency common variable
     Dosage: 5 GRAM, QOD
     Route: 058
     Dates: start: 20181012
  2. HUMAN IMMUNOGLOBULIN G [Suspect]
     Active Substance: HUMAN IMMUNOGLOBULIN G
     Dosage: 5 GRAM
     Route: 058
     Dates: start: 20181015
  3. DIPHENHYDRAMINE [Concomitant]
     Active Substance: DIPHENHYDRAMINE
  4. NUCALA [Concomitant]
     Active Substance: MEPOLIZUMAB
  5. PIROXICAM [Concomitant]
     Active Substance: PIROXICAM
  6. XANAX [Concomitant]
     Active Substance: ALPRAZOLAM
  7. EPINEPHRINE [Concomitant]
     Active Substance: EPINEPHRINE
  8. FIORICET [Concomitant]
     Active Substance: ACETAMINOPHEN\BUTALBITAL\CAFFEINE
  9. ACETAMINOPHEN [Concomitant]
     Active Substance: ACETAMINOPHEN
  10. ZITHROMAX [Concomitant]
     Active Substance: AZITHROMYCIN DIHYDRATE
     Route: 065
  11. SINGULAIR [Concomitant]
     Active Substance: MONTELUKAST SODIUM
  12. ZOFRAN [Concomitant]
     Active Substance: ONDANSETRON HYDROCHLORIDE
  13. PROAIR HFA [Concomitant]
     Active Substance: ALBUTEROL SULFATE
  14. MEDROL [Concomitant]
     Active Substance: METHYLPREDNISOLONE
  15. DULERA [Concomitant]
     Active Substance: FORMOTEROL FUMARATE DIHYDRATE\MOMETASONE FUROATE
  16. LIDOCAINE [Concomitant]
     Active Substance: LIDOCAINE
  17. PREDNISONE [Concomitant]
     Active Substance: PREDNISONE
  18. ZOMIG [Concomitant]
     Active Substance: ZOLMITRIPTAN

REACTIONS (3)
  - Respiratory tract infection [Unknown]
  - Cellulitis [Unknown]
  - Product dose omission issue [Unknown]
